FAERS Safety Report 7334484-6 (Version None)
Quarter: 2011Q1

REPORT INFORMATION
  Report Type: 
  Country: None (occurrence: None)
  Receive Date: 20110307
  Receipt Date: 20100708
  Transmission Date: 20110831
  Serious: Yes (Death, Other)
  Sender: FDA-Public Use
  Company Number: FR-CELGENEUS-056-21880-10070667

PATIENT

DRUGS (1)
  1. REVLIMID [Suspect]
     Dosage: 10 MILLIGRAM
     Route: 048

REACTIONS (11)
  - CEREBRAL HAEMORRHAGE [None]
  - DEEP VEIN THROMBOSIS [None]
  - THROMBOSIS [None]
  - NEUTROPENIA [None]
  - SKIN REACTION [None]
  - SEPSIS [None]
  - DIARRHOEA [None]
  - THROMBOCYTOPENIA [None]
  - ANGIOEDEMA [None]
  - PANCYTOPENIA [None]
  - RASH [None]
